FAERS Safety Report 13597419 (Version 1)
Quarter: 2017Q2

REPORT INFORMATION
  Report Type: Spontaneous
  Country: US (occurrence: US)
  Receive Date: 20170531
  Receipt Date: 20170531
  Transmission Date: 20170830
  Serious: No
  Sender: FDA-Public Use
  Company Number: US-PFIZER INC-2017238156

PATIENT
  Age: 43 Year
  Sex: Female
  Weight: 98.9 kg

DRUGS (8)
  1. CEFAZOLIN [Concomitant]
     Active Substance: CEFAZOLIN
     Indication: PROPHYLAXIS
     Dosage: 2GM IV EVERY 8 HOURS
     Route: 042
     Dates: start: 20170525
  2. BUPIVACAINE HCL [Suspect]
     Active Substance: BUPIVACAINE HYDROCHLORIDE
     Indication: SPINAL ANAESTHESIA
     Dosage: 1.5ML INJECTION INTRATHECALLY ONE TIME
     Route: 037
     Dates: start: 20170525
  3. ROPIVACAINE [Concomitant]
     Active Substance: ROPIVACAINE
     Indication: ANAESTHESIA
     Dosage: 0.375 PERCENT 30ML IV ONE TIME ONLY
     Route: 042
     Dates: start: 20170525, end: 20170525
  4. FENTANYL. [Concomitant]
     Active Substance: FENTANYL
     Indication: ANAESTHESIA
     Dosage: 100MCG IV; RECEIVED FOUR SUCCESSIVE DOSES
     Route: 042
     Dates: start: 20170525
  5. GLYCOPYRROLATE. [Concomitant]
     Active Substance: GLYCOPYRROLATE
     Dosage: 0.2MG IV ONCE ONLY
     Route: 042
     Dates: start: 20170525, end: 20170525
  6. DEXAMETHASONE. [Concomitant]
     Active Substance: DEXAMETHASONE
     Indication: PROPHYLAXIS
     Dosage: 4MG IV ONE TIME ONLY
     Route: 042
     Dates: start: 20170525, end: 20170525
  7. PROPOFOL. [Concomitant]
     Active Substance: PROPOFOL
     Indication: ANAESTHESIA
     Dosage: 120MG IV ONCE
     Route: 042
     Dates: start: 20170525, end: 20170525
  8. ONDANSETRON [Concomitant]
     Active Substance: ONDANSETRON
     Indication: PROPHYLAXIS OF NAUSEA AND VOMITING
     Dosage: 4MG IV ONCE
     Route: 042
     Dates: start: 20170525, end: 20170525

REACTIONS (1)
  - Drug ineffective [Unknown]

NARRATIVE: CASE EVENT DATE: 20170525
